FAERS Safety Report 15877160 (Version 1)
Quarter: 2019Q1

REPORT INFORMATION
  Report Type: Spontaneous
  Country: FR (occurrence: FR)
  Receive Date: 20190128
  Receipt Date: 20190128
  Transmission Date: 20190417
  Serious: Yes (Other)
  Sender: FDA-Public Use
  Company Number: FR-SAKK-2019SA016080AA

PATIENT
  Age: 65 Year
  Sex: Female
  Weight: 62.7 kg

DRUGS (9)
  1. ONDANSETRON HYDROCHLORIDE. [Suspect]
     Active Substance: ONDANSETRON HYDROCHLORIDE
     Indication: PREMEDICATION
     Dosage: 3 DF QD
     Route: 042
     Dates: start: 20181220
  2. PARACETAMOL [Suspect]
     Active Substance: ACETAMINOPHEN
     Indication: PREMEDICATION
     Dosage: 1 G
     Route: 042
     Dates: start: 20181220, end: 20181220
  3. METHYLPREDNISOLONE HEMISUCCINATE [Suspect]
     Active Substance: METHYLPREDNISOLONE HEMISUCCINATE
     Indication: PREMEDICATION
     Dosage: 120 MG
     Route: 042
     Dates: start: 20181220, end: 20181220
  4. DEXCHLORPHENIRAMINE MALEATE. [Suspect]
     Active Substance: DEXCHLORPHENIRAMINE MALEATE
     Indication: PREMEDICATION
     Dosage: 5 MG
     Route: 042
     Dates: start: 20181220, end: 20181220
  5. GUAIFENESIN. [Suspect]
     Active Substance: GUAIFENESIN
  6. CHLORAMBUCIL [Suspect]
     Active Substance: CHLORAMBUCIL
     Indication: CHRONIC LYMPHOCYTIC LEUKAEMIA
     Dosage: 4 MG, QD
     Route: 048
     Dates: start: 20181220
  7. FASTURTEC [Suspect]
     Active Substance: RASBURICASE
     Indication: PREMEDICATION
     Dosage: 15 MG
     Route: 042
     Dates: start: 20181220, end: 20181220
  8. GAZYVARO [Suspect]
     Active Substance: OBINUTUZUMAB
     Indication: CHRONIC LYMPHOCYTIC LEUKAEMIA
     Dosage: 100 MG
     Route: 042
     Dates: start: 20181220, end: 20181220
  9. NOSCAPINE [Suspect]
     Active Substance: NOSCAPINE

REACTIONS (2)
  - Hepatocellular injury [Not Recovered/Not Resolved]
  - Cholestasis [Not Recovered/Not Resolved]

NARRATIVE: CASE EVENT DATE: 20181221
